FAERS Safety Report 7142457-1 (Version None)
Quarter: 2010Q4

REPORT INFORMATION
  Report Type: 
  Country: None (occurrence: None)
  Receive Date: 20101207
  Receipt Date: 20101112
  Transmission Date: 20110411
  Serious: No
  Sender: FDA-Public Use
  Company Number: US-PFIZER INC-2010150978

PATIENT

DRUGS (1)
  1. ALAVERT [Suspect]
     Route: 048

REACTIONS (1)
  - LETHARGY [None]
